FAERS Safety Report 5677956-2 (Version None)
Quarter: 2008Q1

REPORT INFORMATION
  Report Type: 
  Country: None (occurrence: None)
  Receive Date: 20080319
  Receipt Date: 20080307
  Transmission Date: 20080703
  Serious: Yes (Other)
  Sender: FDA-Public Use
  Company Number: 2008S1004035

PATIENT
  Weight: 2.7669 kg

DRUGS (1)
  1. CUROSURF [Suspect]
     Indication: NEONATAL RESPIRATORY DISTRESS SYNDROME
     Dates: start: 20070701

REACTIONS (1)
  - PULMONARY HAEMORRHAGE [None]
